FAERS Safety Report 13877719 (Version 1)
Quarter: 2017Q3

REPORT INFORMATION
  Report Type: Spontaneous
  Country: US (occurrence: US)
  Receive Date: 20170817
  Receipt Date: 20170817
  Transmission Date: 20171127
  Serious: No
  Sender: FDA-Public Use
  Company Number: US-TEVA-797184ACC

PATIENT
  Sex: Female

DRUGS (1)
  1. COPAXONE [Suspect]
     Active Substance: GLATIRAMER ACETATE
     Dosage: UNKNOWN STRENGTH
     Route: 065

REACTIONS (6)
  - Drug dose omission [Unknown]
  - Weight increased [Unknown]
  - Alopecia [Unknown]
  - Dyspnoea [Unknown]
  - Lipoatrophy [Unknown]
  - Memory impairment [Unknown]
